FAERS Safety Report 6801039-9 (Version None)
Quarter: 2010Q2

REPORT INFORMATION
  Report Type: 
  Country: None (occurrence: None)
  Receive Date: 20100629
  Receipt Date: 20100624
  Transmission Date: 20101027
  Serious: Yes (Death)
  Sender: FDA-Public Use
  Company Number: CN-JNJFOC-20100607588

PATIENT
  Age: 37 Year
  Sex: Female

DRUGS (13)
  1. SPORANOX [Suspect]
     Indication: LUNG INFECTION
     Route: 041
  2. SPORANOX [Suspect]
     Route: 041
  3. SPORANOX [Suspect]
     Indication: INFECTION
     Route: 041
  4. SPORANOX [Suspect]
     Route: 041
  5. IMIPENEM AND CILASTATIN [Concomitant]
     Indication: INFECTION
     Route: 065
  6. SODIUM VALPROAT [Concomitant]
     Indication: INFECTION
     Route: 065
  7. SODIUM VALPROAT [Concomitant]
     Route: 065
  8. DIAZEPAM [Concomitant]
     Indication: INFECTION
     Route: 065
  9. MANNITOL [Concomitant]
     Indication: INFECTION
     Route: 065
  10. VANCOMYCIN [Concomitant]
     Indication: INFECTION
     Route: 065
  11. MAXIPIME [Concomitant]
     Indication: INFECTION
     Route: 065
  12. ACYCLOVIR [Concomitant]
     Indication: INFECTION
     Route: 065
  13. NEUPOGEN [Concomitant]
     Indication: INFECTION
     Route: 065

REACTIONS (16)
  - ANAEMIA [None]
  - ASTHENIA [None]
  - CARDIAC FAILURE [None]
  - CONVULSION [None]
  - COUGH [None]
  - DIZZINESS [None]
  - EPISTAXIS [None]
  - FEELING ABNORMAL [None]
  - GASTROINTESTINAL HAEMORRHAGE [None]
  - HEADACHE [None]
  - HYPOAESTHESIA [None]
  - MUSCULOSKELETAL CHEST PAIN [None]
  - PALPITATIONS [None]
  - PRODUCTIVE COUGH [None]
  - SOMNOLENCE [None]
  - VISION BLURRED [None]
